FAERS Safety Report 24038913 (Version 1)
Quarter: 2024Q3

REPORT INFORMATION
  Report Type: Other
  Country: CA (occurrence: CA)
  Receive Date: 20240702
  Receipt Date: 20240702
  Transmission Date: 20241017
  Serious: Yes (Hospitalization, Other)
  Sender: APOTEX
  Company Number: CA-APOTEX-2024AP007666

PATIENT
  Age: 77 Year
  Sex: Male
  Weight: 65.76 kg

DRUGS (1)
  1. ZOLEDRONIC ACID [Suspect]
     Active Substance: ZOLEDRONIC ACID
     Indication: Osteoporosis
     Dosage: 100 MILLIGRAM, 1 EVERY 1 YEAR
     Route: 042

REACTIONS (1)
  - Cerebrovascular accident [Unknown]
